FAERS Safety Report 25818731 (Version 1)
Quarter: 2025Q3

REPORT INFORMATION
  Report Type: Report from Study
  Country: US (occurrence: US)
  Receive Date: 20250918
  Receipt Date: 20250918
  Transmission Date: 20251021
  Serious: No
  Sender: MALLINCKRODT
  Company Number: US-MALLINCKRODT-MNK202505663

PATIENT
  Age: 41 Year
  Sex: Female

DRUGS (1)
  1. CORTICOTROPIN [Suspect]
     Active Substance: CORTICOTROPIN
     Indication: Multiple sclerosis
     Dosage: 80 UNITS
     Route: 058
     Dates: start: 20250829, end: 20250902

REACTIONS (8)
  - Injection site reaction [Unknown]
  - Asthenia [Unknown]
  - Fatigue [Unknown]
  - Fluid retention [Unknown]
  - Insomnia [Unknown]
  - Headache [Unknown]
  - Blood glucose increased [Unknown]
  - Dizziness [Unknown]

NARRATIVE: CASE EVENT DATE: 20250101
